FAERS Safety Report 17283376 (Version 1)
Quarter: 2020Q1

REPORT INFORMATION
  Report Type: Spontaneous
  Country: CA (occurrence: CA)
  Receive Date: 20200117
  Receipt Date: 20200117
  Transmission Date: 20200409
  Serious: Yes (Hospitalization, Other)
  Sender: FDA-Public Use
  Company Number: CA-ICU MEDICAL, INC.-ICU2020CA00001

PATIENT
  Age: 65 Year
  Sex: Female
  Weight: 75 kg

DRUGS (7)
  1. MORPHINE SULFATE INJECTION [Suspect]
     Active Substance: MORPHINE SULFATE
     Indication: ANALGESIC THERAPY
     Dosage: 5 MILLIGRAM
     Route: 042
  2. FENTANYL. [Suspect]
     Active Substance: FENTANYL
     Indication: SEDATION
     Dosage: 100 MICROGRAM
  3. FENTANYL. [Suspect]
     Active Substance: FENTANYL
     Indication: ANALGESIC THERAPY
  4. PROPOFOL. [Suspect]
     Active Substance: PROPOFOL
     Indication: ANALGESIC THERAPY
     Dosage: UNK
     Route: 042
  5. FENTANYL. [Suspect]
     Active Substance: FENTANYL
     Indication: ANALGESIC THERAPY
  6. FENTANYL. [Suspect]
     Active Substance: FENTANYL
     Indication: SEDATION
     Dosage: 100 MICROGRAM
     Route: 042
  7. PROPOFOL. [Suspect]
     Active Substance: PROPOFOL
     Indication: SEDATION
     Dosage: 60 MILLIGRAM
     Route: 042

REACTIONS (1)
  - Pneumonia aspiration [Unknown]
